FAERS Safety Report 4485281-0 (Version None)
Quarter: 2004Q4

REPORT INFORMATION
  Report Type: 
  Country: None (occurrence: None)
  Receive Date: 20041022
  Receipt Date: 20041022
  Transmission Date: 20050328
  Serious: Yes (Other)
  Sender: FDA-Public Use
  Company Number: None

PATIENT
  Age: 28 Year
  Sex: Female
  Weight: 78.0187 kg

DRUGS (1)
  1. ROFECOXIB [Suspect]
     Indication: PAIN IN EXTREMITY
     Dosage: 25 MG DAILY ORAL
     Route: 048
     Dates: start: 20040916, end: 20040917

REACTIONS (1)
  - THROAT TIGHTNESS [None]
